FAERS Safety Report 21065112 (Version 2)
Quarter: 2023Q2

REPORT INFORMATION
  Report Type: Report from Study
  Country: US (occurrence: US)
  Receive Date: 20220711
  Receipt Date: 20230505
  Transmission Date: 20230721
  Serious: Yes (Hospitalization, Other)
  Sender: FDA-Public Use
  Company Number: US-TAKEDA-US201928236

PATIENT
  Age: 69 Year
  Sex: Female

DRUGS (1)
  1. HUMAN IMMUNOGLOBULIN G [Suspect]
     Active Substance: HUMAN IMMUNOGLOBULIN G
     Indication: Immunodeficiency common variable
     Dosage: UNK
     Route: 042

REACTIONS (6)
  - Upper limb fracture [Unknown]
  - Pneumonia [Unknown]
  - General physical health deterioration [Unknown]
  - Arthritis [Unknown]
  - Device defective [Unknown]
  - Cough [Unknown]

NARRATIVE: CASE EVENT DATE: 20221201
